FAERS Safety Report 9296204 (Version 2)
Quarter: 2013Q2

REPORT INFORMATION
  Report Type: Report from Study
  Country: US (occurrence: US)
  Receive Date: 20130517
  Receipt Date: 20130524
  Transmission Date: 20140414
  Serious: Yes (Hospitalization, Other)
  Sender: FDA-Public Use
  Company Number: US-ALEXION PHARMACEUTICALS INC.-A201301076

PATIENT
  Age: 40 Year
  Sex: Female
  Weight: 83 kg

DRUGS (24)
  1. SOLIRIS [Suspect]
     Indication: HAEMOLYTIC URAEMIC SYNDROME
     Dosage: 900 MG, UNK
     Route: 042
     Dates: start: 20120712
  2. AMBIEN [Concomitant]
     Indication: INSOMNIA
     Dosage: 5 MG, QD HS PRN
     Route: 048
     Dates: start: 20130109
  3. ATARAX [Concomitant]
     Dosage: 50MG-100MG, QHS
     Dates: start: 20120228
  4. ATIVAN [Concomitant]
     Indication: NAUSEA
     Dosage: 1 MG, Q4H
     Dates: start: 20130226
  5. ATIVAN [Concomitant]
     Indication: ANXIETY
  6. ATIVAN [Concomitant]
     Indication: INSOMNIA
  7. CELEXA [Concomitant]
     Dosage: 20 MG, QD
     Route: 048
     Dates: start: 20130423
  8. CLOTRIMAZOLE [Concomitant]
     Dosage: APPLY TO SKIN, BID
     Route: 061
     Dates: start: 20120817
  9. GABAPENTIN [Concomitant]
     Dosage: 100 MG, QD HS
     Route: 048
     Dates: start: 20130319
  10. HYDROCORT [Concomitant]
     Dosage: APPLY TO SKIN, BID
     Route: 061
     Dates: start: 20120817
  11. HYDROMORPHONE [Concomitant]
     Indication: PAIN
     Dosage: 4 MG, Q 2-3H PRN
     Route: 048
     Dates: start: 20130430
  12. LASIX [Concomitant]
     Dosage: 40 MG, BID
     Route: 048
     Dates: start: 20130405
  13. LASIX [Concomitant]
     Dosage: 80 MG, BID
     Route: 048
     Dates: start: 20130422
  14. LIPITOR [Concomitant]
     Dosage: 20 MG, QD
     Route: 048
     Dates: start: 20130503
  15. LOVAZA [Concomitant]
     Dosage: 2 G, QD
     Route: 048
     Dates: start: 20111018
  16. METOPROLOL SUCCINATE [Concomitant]
     Dosage: 50 MG, BID
     Route: 048
     Dates: start: 20130226
  17. POTASSIUM CHLORIDE [Concomitant]
     Dosage: 20 MEQ, 1-2 WITH LASIX
     Route: 048
     Dates: start: 20130426
  18. PROCHLORPERAZINE MALEATE [Concomitant]
     Indication: NAUSEA
     Dosage: 10 MG, QID PRN
     Route: 048
     Dates: start: 20130208
  19. REGLAN [Concomitant]
     Indication: NAUSEA
     Dosage: 10 MG, QID PRN
     Route: 048
     Dates: start: 20130305
  20. TRIAMCINOLONE ACETONIDE [Concomitant]
     Dosage: APPLY TO SKIN, BID
     Route: 061
     Dates: start: 20120817
  21. XANAX [Concomitant]
     Dosage: 0.5 MG, TID PRN
     Route: 048
     Dates: start: 20130405
  22. ZOFRAN [Concomitant]
     Indication: NAUSEA
     Dosage: 8 MG, TID PRN
     Route: 048
     Dates: start: 20130208
  23. PERCOCET [Concomitant]
     Dosage: 7.5/325 MG, 1-2 Q 4-6H PRN
  24. LEVOTHYROXINE [Concomitant]
     Dosage: 13 ?G, QD

REACTIONS (9)
  - Mycosis fungoides recurrent [Recovering/Resolving]
  - Staphylococcal bacteraemia [Recovered/Resolved]
  - Systemic inflammatory response syndrome [Recovering/Resolving]
  - Hypokalaemia [Recovered/Resolved]
  - Dehydration [Recovered/Resolved]
  - Oliguria [Not Recovered/Not Resolved]
  - Hypersomnia [Not Recovered/Not Resolved]
  - Thirst [Not Recovered/Not Resolved]
  - Dry mouth [Not Recovered/Not Resolved]
